FAERS Safety Report 8302599-1 (Version None)
Quarter: 2012Q2

REPORT INFORMATION
  Report Type: 
  Country: None (occurrence: None)
  Receive Date: 20120418
  Receipt Date: 20120411
  Transmission Date: 20120825
  Serious: Yes (Other)
  Sender: FDA-Public Use
  Company Number: 2010MA003188

PATIENT
  Sex: Female
  Weight: 58.9676 kg

DRUGS (28)
  1. AMIODARONE HCL [Concomitant]
  2. CLONAZEPAM [Concomitant]
  3. METOPROLOL TARTRATE [Concomitant]
  4. PROAIR HFA [Concomitant]
  5. SEROQUEL [Concomitant]
  6. CYCLOBENZAPRINE [Concomitant]
  7. LISINOPRIL [Concomitant]
  8. SINGULAIR [Concomitant]
  9. AMOXICILLIN [Concomitant]
  10. COGENTIN [Concomitant]
  11. LASIX [Concomitant]
  12. NASONEX [Concomitant]
  13. PRILOSEC [Concomitant]
  14. LEXAPRO [Concomitant]
  15. SINEMET [Concomitant]
  16. ALDOPA [Concomitant]
  17. LAMICTAL [Concomitant]
  18. PACERONE [Concomitant]
  19. TUSSIONEX [Concomitant]
  20. METOCLOPRAMIDE [Suspect]
     Indication: IMPAIRED GASTRIC EMPTYING
     Dosage: 10 MG;TID;PO
     Route: 048
     Dates: start: 20080822, end: 20090411
  21. METOCLOPRAMIDE [Suspect]
     Indication: NAUSEA
     Dosage: 10 MG;TID;PO
     Route: 048
     Dates: start: 20080822, end: 20090411
  22. ALDACTONE [Concomitant]
  23. NITROFURANTOIN [Concomitant]
  24. XANAX [Concomitant]
  25. CITALOPRAM HYDROBROMIDE [Concomitant]
  26. HYDROCODONE BITARTRATE AND ACETAMINOPHEN [Concomitant]
  27. SPIRIVA [Concomitant]
  28. VICODIN [Concomitant]

REACTIONS (24)
  - TARDIVE DYSKINESIA [None]
  - DRUG INEFFECTIVE [None]
  - DEPRESSION [None]
  - SPINAL OSTEOARTHRITIS [None]
  - RESPIRATORY RATE INCREASED [None]
  - CONFUSIONAL STATE [None]
  - PAIN [None]
  - ANXIETY [None]
  - BRUXISM [None]
  - GLOMERULAR FILTRATION RATE DECREASED [None]
  - ECONOMIC PROBLEM [None]
  - EMOTIONAL DISTRESS [None]
  - MOVEMENT DISORDER [None]
  - ACTIVITIES OF DAILY LIVING IMPAIRED [None]
  - EXTRAPYRAMIDAL DISORDER [None]
  - DYSTONIA [None]
  - KYPHOSCOLIOSIS [None]
  - ASPARTATE AMINOTRANSFERASE INCREASED [None]
  - DRUG INTOLERANCE [None]
  - TREMOR [None]
  - ANEURYSM [None]
  - CEREBRAL SMALL VESSEL ISCHAEMIC DISEASE [None]
  - AKATHISIA [None]
  - BLOOD UREA INCREASED [None]
